FAERS Safety Report 9621065 (Version 2)
Quarter: 2013Q4

REPORT INFORMATION
  Report Type: Report from Study
  Country: DE (occurrence: DE)
  Receive Date: 20131015
  Receipt Date: 20131023
  Transmission Date: 20140711
  Serious: No
  Sender: FDA-Public Use
  Company Number: DE-ASTELLAS-2013US010751

PATIENT
  Sex: Male

DRUGS (1)
  1. TACROLIMUS OINTMENT [Suspect]
     Indication: DERMATITIS ATOPIC
     Dosage: 0.03 %, UNKNOWN/D
     Route: 061
     Dates: start: 20110221

REACTIONS (2)
  - Infection [Unknown]
  - Oropharyngeal pain [Unknown]
